FAERS Safety Report 5366548-0 (Version None)
Quarter: 2007Q2

REPORT INFORMATION
  Report Type: 
  Country: None (occurrence: None)
  Receive Date: 20070622
  Receipt Date: 20070611
  Transmission Date: 20071010
  Serious: Yes (Other)
  Sender: FDA-Public Use
  Company Number: ES-PFIZER INC-2007047150

PATIENT
  Age: 25 Year
  Sex: Female
  Weight: 68 kg

DRUGS (2)
  1. ALDACTONE [Suspect]
     Dosage: DAILY DOSE:100MG-FREQ:DAILY
     Route: 048
  2. TOPAMAX [Suspect]
     Indication: EPILEPSY
     Route: 048

REACTIONS (1)
  - HYPERPROLACTINAEMIA [None]
